FAERS Safety Report 6802074-7 (Version None)
Quarter: 2010Q2

REPORT INFORMATION
  Report Type: 
  Country: None (occurrence: None)
  Receive Date: 20100629
  Receipt Date: 20071128
  Transmission Date: 20101027
  Serious: Yes (Hospitalization, Other)
  Sender: FDA-Public Use
  Company Number: US-PFIZER INC-2006120177

PATIENT
  Sex: Male
  Weight: 101.6 kg

DRUGS (5)
  1. BEXTRA [Suspect]
     Indication: OSTEOARTHRITIS
     Dates: start: 20040101
  2. VIOXX [Suspect]
     Indication: ARTHRALGIA
     Route: 048
     Dates: start: 20030101
  3. VIOXX [Suspect]
     Indication: OSTEOARTHRITIS
  4. VICODIN [Concomitant]
     Indication: ARTHRALGIA
     Dates: start: 20020101
  5. VICODIN [Concomitant]
     Indication: FIBROMYALGIA

REACTIONS (1)
  - MYOCARDIAL INFARCTION [None]
